FAERS Safety Report 5975761-0 (Version None)
Quarter: 2008Q4

REPORT INFORMATION
  Report Type: 
  Country: None (occurrence: None)
  Receive Date: 20081202
  Receipt Date: 20081117
  Transmission Date: 20090506
  Serious: Yes (Other)
  Sender: FDA-Public Use
  Company Number: ES-MERCK-0811ESP00022

PATIENT
  Age: 54 Year
  Sex: Male

DRUGS (12)
  1. ZOCOR [Suspect]
     Indication: CARDIAC DISORDER
     Route: 048
     Dates: start: 20040601, end: 20070101
  2. VASOTEC [Concomitant]
     Indication: CARDIAC DISORDER
     Route: 048
     Dates: start: 20040601
  3. ATENOLOL [Concomitant]
     Indication: CARDIAC DISORDER
     Route: 048
     Dates: start: 20040601
  4. RISPERIDONE [Suspect]
     Indication: PSYCHOTIC DISORDER
     Route: 048
     Dates: start: 20070101, end: 20070101
  5. CYCLOSPORINE [Suspect]
     Indication: PROPHYLAXIS AGAINST GRAFT VERSUS HOST DISEASE
     Route: 042
     Dates: start: 20070101, end: 20070101
  6. CYCLOSPORINE [Suspect]
     Route: 042
     Dates: start: 20070101, end: 20070101
  7. ACYCLOVIR [Concomitant]
     Indication: INFECTION PROPHYLAXIS
     Route: 042
     Dates: start: 20070101, end: 20070101
  8. VORICONAZOLE [Concomitant]
     Indication: INFECTION PROPHYLAXIS
     Route: 048
     Dates: start: 20070101, end: 20070101
  9. PENTAMIDINE ISETHIONATE [Concomitant]
     Indication: INFECTION PROPHYLAXIS
     Dates: start: 20070101
  10. ANTILYMPHOCYTE IMMUNOGLOBULIN [Concomitant]
     Indication: INFECTION PROPHYLAXIS
     Route: 042
     Dates: start: 20070101
  11. METHOTREXATE [Concomitant]
     Indication: PROPHYLAXIS AGAINST GRAFT VERSUS HOST DISEASE
     Route: 042
     Dates: start: 20070101
  12. METHOTREXATE [Concomitant]
     Route: 042
     Dates: start: 20070101

REACTIONS (3)
  - DRUG INTERACTION [None]
  - RENAL FAILURE ACUTE [None]
  - RHABDOMYOLYSIS [None]
